FAERS Safety Report 9060900 (Version 1)
Quarter: 2013Q1

REPORT INFORMATION
  Report Type: Spontaneous
  Country: JP (occurrence: JP)
  Receive Date: 20130212
  Receipt Date: 20130212
  Transmission Date: 20140127
  Serious: Yes (Hospitalization)
  Sender: FDA-Public Use
  Company Number: JP-ROXANE LABORATORIES, INC.-2013-RO-00219RO

PATIENT
  Age: 62 Year
  Sex: Female

DRUGS (2)
  1. METHOTREXATE [Suspect]
     Indication: POLYMYOSITIS
     Route: 048
  2. PREDNISOLONE [Suspect]
     Indication: POLYMYOSITIS
     Dosage: 10 MG
     Route: 048

REACTIONS (3)
  - Cytomegalovirus infection [Recovered/Resolved]
  - Bronchitis viral [Recovered/Resolved]
  - Pneumonitis [Recovered/Resolved]
